FAERS Safety Report 5766655-4 (Version None)
Quarter: 2008Q2

REPORT INFORMATION
  Report Type: 
  Country: None (occurrence: None)
  Receive Date: 20080610
  Receipt Date: 20080610
  Transmission Date: 20081010
  Serious: Yes (Hospitalization)
  Sender: FDA-Public Use
  Company Number: None

PATIENT
  Age: 86 Year
  Sex: Female
  Weight: 41 kg

DRUGS (1)
  1. LITHIUM CARBONATE [Suspect]
     Indication: BIPOLAR DISORDER
     Dosage: 150MG QAM PO 300MG BEDTIME PO NOT NEW
     Route: 048

REACTIONS (3)
  - ABASIA [None]
  - ASTHENIA [None]
  - CONFUSIONAL STATE [None]
